FAERS Safety Report 4728783-1 (Version None)
Quarter: 2005Q3

REPORT INFORMATION
  Report Type: 
  Country: None (occurrence: None)
  Receive Date: 20050721
  Receipt Date: 20050506
  Transmission Date: 20060218
  Serious: No
  Sender: FDA-Public Use
  Company Number: 2005SP000604

PATIENT
  Age: 82 Year
  Sex: Male
  Weight: 77.1115 kg

DRUGS (9)
  1. LUNESTA [Suspect]
     Indication: INSOMNIA
     Dosage: 3 MG; HS; ORAL
     Route: 048
     Dates: start: 20050505, end: 20050505
  2. ZOCOR [Concomitant]
  3. XANAX [Concomitant]
  4. SOTALOL HCL [Concomitant]
  5. TRICOLR [Concomitant]
  6. MICROZIDE [Concomitant]
  7. COUMADIN [Concomitant]
  8. ASPIRIN [Concomitant]
  9. NEXIUM [Concomitant]

REACTIONS (6)
  - DIZZINESS [None]
  - DYSGEUSIA [None]
  - FEELING JITTERY [None]
  - INSOMNIA [None]
  - RESTLESSNESS [None]
  - SOMNOLENCE [None]
